FAERS Safety Report 6764662-6 (Version None)
Quarter: 2010Q2

REPORT INFORMATION
  Report Type: 
  Country: None (occurrence: None)
  Receive Date: 20100609
  Receipt Date: 20100428
  Transmission Date: 20101027
  Serious: No
  Sender: FDA-Public Use
  Company Number: 2010010264

PATIENT
  Age: 48 Year
  Sex: Female

DRUGS (1)
  1. CHILDREN'S ZYRTEC ALLERGY [Suspect]
     Indication: HYPERSENSITIVITY
     Dosage: ONCE DAILY,ORAL
     Route: 048
     Dates: start: 20100426

REACTIONS (1)
  - DRUG INEFFECTIVE [None]
